FAERS Safety Report 8875764 (Version 1)
Quarter: 2012Q4

REPORT INFORMATION
  Report Type: 
  Country: US (occurrence: US)
  Receive Date: 20121023
  Receipt Date: 20121023
  Transmission Date: 20130627
  Serious: Yes (Hospitalization)
  Sender: FDA-Public Use
  Company Number: US-ALLERGAN-1214577US

PATIENT
  Age: 59 Year
  Sex: Female

DRUGS (6)
  1. BOTOX COSMETIC [Suspect]
     Indication: CROW^S FEET
     Dosage: 18 UNITS to each crows feet, single
     Route: 030
     Dates: start: 20121017, end: 20121017
  2. BOTOX COSMETIC [Suspect]
     Dosage: 9 UNITS, single
     Route: 030
     Dates: start: 20121017, end: 20121017
  3. RADIESSE [Concomitant]
     Indication: SKIN WRINKLING
     Dosage: UNK, single
     Route: 030
     Dates: start: 20121017, end: 20121017
  4. ACE INHIBITOR NOS [Concomitant]
     Indication: HYPERTENSION
     Dosage: UNK
     Dates: start: 2009
  5. ANESTHETICS FOR TOPICAL USE [Concomitant]
     Indication: ANESTHESIA LOCAL
     Dosage: UNK
     Route: 061
     Dates: start: 20121017, end: 20121017
  6. SILVER SULFADIAZINE [Concomitant]
     Indication: ANTIBACTERIAL PROPHYLAXIS

REACTIONS (2)
  - Swelling face [Not Recovered/Not Resolved]
  - Angioedema [Not Recovered/Not Resolved]
